FAERS Safety Report 9014023 (Version 1)
Quarter: 2013Q1

REPORT INFORMATION
  Report Type: Spontaneous
  Country: US (occurrence: None)
  Receive Date: 20130109
  Receipt Date: 20130109
  Transmission Date: 20140127
  Serious: No
  Sender: FDA-Public Use
  Company Number: None

PATIENT
  Age: 52 Year
  Sex: Female

DRUGS (1)
  1. METFORMIN [Suspect]
     Indication: DIABETES MELLITUS
     Dosage: 1000MG BID PO
     Route: 048
     Dates: start: 20121202, end: 20121213

REACTIONS (3)
  - Product odour abnormal [None]
  - Product quality issue [None]
  - Product substitution issue [None]
